FAERS Safety Report 24867643 (Version 2)
Quarter: 2025Q1

REPORT INFORMATION
  Report Type: Spontaneous
  Country: FR (occurrence: FR)
  Receive Date: 20250121
  Receipt Date: 20250127
  Transmission Date: 20250408
  Serious: Yes (Other)
  Sender: NOVARTIS
  Company Number: FR-009507513-2501FRA003519

PATIENT
  Age: 64 Year
  Sex: Male

DRUGS (4)
  1. NEORAL [Suspect]
     Active Substance: CYCLOSPORINE
     Indication: Transplant rejection
     Dosage: 150 MG, QD (75 MILLIGRAM, BID, IN THE MORNING AND IN THE EVENING FOR 10 DAYS) (DOSE INCREASED)
     Route: 065
     Dates: start: 202501
  2. NEORAL [Suspect]
     Active Substance: CYCLOSPORINE
     Route: 065
     Dates: end: 202501
  3. PREVYMIS [Suspect]
     Active Substance: LETERMOVIR
     Indication: Cytomegalovirus viraemia
     Dosage: 240 MG, QD
     Route: 048
     Dates: end: 202501
  4. PREVYMIS [Suspect]
     Active Substance: LETERMOVIR
     Dosage: 240 MG, QD (480 MG TABLETS SPLIT INTO 2 PARTS)
     Route: 048
     Dates: start: 20250106, end: 202501

REACTIONS (6)
  - Graft versus host disease in skin [Recovering/Resolving]
  - Oesophageal pain [Recovered/Resolved]
  - Oesophagitis [Recovered/Resolved]
  - Insomnia [Recovered/Resolved]
  - Wrong technique in product usage process [Unknown]
  - Product availability issue [Unknown]

NARRATIVE: CASE EVENT DATE: 20250101
